FAERS Safety Report 25078485 (Version 1)
Quarter: 2025Q1

REPORT INFORMATION
  Report Type: Spontaneous
  Country: US (occurrence: None)
  Receive Date: 20250313
  Receipt Date: 20250313
  Transmission Date: 20250409
  Serious: Yes (unspecified)
  Sender: FDA-CTU
  Company Number: None

PATIENT
  Age: 37 Year
  Sex: Male
  Weight: 103.5 kg

DRUGS (1)
  1. SAVELLA [Suspect]
     Active Substance: MILNACIPRAN HYDROCHLORIDE
     Indication: Fibromyalgia
     Dates: start: 20250310

REACTIONS (5)
  - Pain [None]
  - Electric shock sensation [None]
  - Sleep disorder [None]
  - Bruxism [None]
  - Impaired work ability [None]
